FAERS Safety Report 12818321 (Version 5)
Quarter: 2018Q4

REPORT INFORMATION
  Report Type: Spontaneous
  Country: PL (occurrence: PL)
  Receive Date: 20161006
  Receipt Date: 20181214
  Transmission Date: 20190204
  Serious: Yes (Life-Threatening, Hospitalization, Other)
  Sender: FDA-Public Use
  Company Number: PL-ROCHE-1839313

PATIENT
  Age: 68 Year
  Sex: Female
  Weight: 68 kg

DRUGS (3)
  1. MABTHERA [Suspect]
     Active Substance: RITUXIMAB
     Indication: CHRONIC LYMPHOCYTIC LEUKAEMIA
     Route: 042
     Dates: start: 20160927, end: 20160927
  2. MABTHERA [Suspect]
     Active Substance: RITUXIMAB
     Route: 042
  3. MABTHERA [Suspect]
     Active Substance: RITUXIMAB
     Indication: CHRONIC LYMPHOCYTIC LEUKAEMIA
     Route: 065
     Dates: start: 20141028, end: 20141028

REACTIONS (6)
  - Shock [Unknown]
  - Blood pressure increased [Recovered/Resolved with Sequelae]
  - Dyspnoea [Recovered/Resolved]
  - Blood pressure decreased [Recovered/Resolved]
  - Cold sweat [Recovered/Resolved with Sequelae]
  - Shock [Recovered/Resolved with Sequelae]

NARRATIVE: CASE EVENT DATE: 20160927
